FAERS Safety Report 7092492-7 (Version None)
Quarter: 2010Q4

REPORT INFORMATION
  Report Type: 
  Country: None (occurrence: None)
  Receive Date: 20101108
  Receipt Date: 20101108
  Transmission Date: 20110411
  Serious: Yes (Other)
  Sender: FDA-Public Use
  Company Number: None

PATIENT
  Sex: Male
  Weight: 74.8435 kg

DRUGS (2)
  1. AMIODARONE HCL [Suspect]
     Indication: ARRHYTHMIA
     Dosage: 20 MG. ONCE A DAY PO
     Route: 048
     Dates: start: 20100503, end: 20100828
  2. AMIODARONE HCL [Suspect]
     Indication: CORONARY ARTERY BYPASS
     Dosage: 20 MG. ONCE A DAY PO
     Route: 048
     Dates: start: 20100503, end: 20100828

REACTIONS (3)
  - COUGH [None]
  - DYSPNOEA [None]
  - LUNG INFILTRATION [None]
